FAERS Safety Report 6454736-1 (Version None)
Quarter: 2009Q4

REPORT INFORMATION
  Report Type: 
  Country: None (occurrence: None)
  Receive Date: 20091124
  Receipt Date: 20091116
  Transmission Date: 20100525
  Serious: Yes (Other)
  Sender: FDA-Public Use
  Company Number: ZA-WATSON-2009-09807

PATIENT
  Age: 32 Year
  Sex: Male

DRUGS (3)
  1. ETOPOSIDE [Suspect]
     Indication: TESTICULAR CANCER METASTATIC
     Dosage: UNK
  2. BLEOMYCIN SULFATE [Suspect]
     Indication: TESTICULAR CANCER METASTATIC
     Dosage: UNK
  3. CISPLATIN [Suspect]
     Indication: TESTICULAR CANCER METASTATIC
     Dosage: UNK

REACTIONS (1)
  - SMALL INTESTINAL PERFORATION [None]
